FAERS Safety Report 10648816 (Version 1)
Quarter: 2014Q4

REPORT INFORMATION
  Report Type: Spontaneous
  Country: CH (occurrence: CH)
  Receive Date: 20141212
  Receipt Date: 20141212
  Transmission Date: 20150529
  Serious: Yes (Hospitalization)
  Sender: FDA-Public Use
  Company Number: CH-TEVA-527209ISR

PATIENT
  Age: 74 Year
  Sex: Female

DRUGS (4)
  1. SURMONTIL [Concomitant]
     Active Substance: TRIMIPRAMINE MALEATE
     Dosage: 8 GTT DAILY; 1 DROP = 1 MG TRIMIPRAMINE
     Route: 048
     Dates: start: 2011
  2. CO-LISINOPRIL [Suspect]
     Active Substance: HYDROCHLOROTHIAZIDE\LISINOPRIL
     Indication: ESSENTIAL HYPERTENSION
     Dosage: 1 DOSAGE FORMS DAILY; 1 DF = 10 MG LISINOPRIL AND 12.5 MG HYDROCHLOROTHIAZIDE
     Route: 048
     Dates: start: 201401, end: 20141101
  3. ASPIRIN CARDIO 100 MG FILMTABLETTEN [Suspect]
     Active Substance: ASPIRIN
     Dosage: 100 MILLIGRAM DAILY;
     Route: 048
     Dates: start: 2011
  4. ZOLPIDEM [Concomitant]
     Active Substance: ZOLPIDEM\ZOLPIDEM TARTRATE
     Dosage: .5 MILLIGRAM DAILY; PATIENT HAD BEEN TAKING THE DRUG SINCE 4 MONTHS
     Route: 065
     Dates: start: 201406

REACTIONS (3)
  - Inflammation [Unknown]
  - Leukocytosis [Unknown]
  - Dermatitis bullous [Recovering/Resolving]

NARRATIVE: CASE EVENT DATE: 2014
